FAERS Safety Report 6121538-5 (Version None)
Quarter: 2009Q1

REPORT INFORMATION
  Report Type: 
  Country: None (occurrence: None)
  Receive Date: 20090317
  Receipt Date: 20090306
  Transmission Date: 20090719
  Serious: Yes (Hospitalization, Other)
  Sender: FDA-Public Use
  Company Number: US-JNJFOC-20090302187

PATIENT
  Sex: Female
  Weight: 45.36 kg

DRUGS (6)
  1. INVEGA [Suspect]
     Indication: BIPOLAR DISORDER
     Route: 048
  2. INVEGA [Suspect]
     Indication: SCHIZOAFFECTIVE DISORDER
     Route: 048
  3. RISPERDAL [Suspect]
     Indication: SCHIZOAFFECTIVE DISORDER
     Route: 048
  4. RISPERDAL [Suspect]
     Indication: BIPOLAR DISORDER
     Route: 048
  5. DEPAKOTE [Suspect]
  6. DEPAKOTE [Suspect]
     Indication: SCHIZOAFFECTIVE DISORDER
     Dosage: 7 TO 15 500MG TABLETS AT ONCE

REACTIONS (2)
  - FATIGUE [None]
  - OVERDOSE [None]
